FAERS Safety Report 6312724-X (Version None)
Quarter: 2009Q3

REPORT INFORMATION
  Report Type: 
  Country: None (occurrence: None)
  Receive Date: 20090817
  Receipt Date: 20090817
  Transmission Date: 20100115
  Serious: No
  Sender: FDA-Public Use
  Company Number: None

PATIENT

DRUGS (1)
  1. BONIVA [Suspect]

REACTIONS (10)
  - CHOKING [None]
  - DYSPEPSIA [None]
  - DYSPNOEA [None]
  - EXOSTOSIS [None]
  - FEAR [None]
  - HEADACHE [None]
  - JOINT RANGE OF MOTION DECREASED [None]
  - MUSCLE SPASMS [None]
  - PAIN [None]
  - ROAD TRAFFIC ACCIDENT [None]
